FAERS Safety Report 13777113 (Version 3)
Quarter: 2021Q3

REPORT INFORMATION
  Report Type: Report from Study
  Country: None (occurrence: CA)
  Receive Date: 20170720
  Receipt Date: 20210813
  Transmission Date: 20211014
  Serious: Yes (Death, Other)
  Sender: FDA-Public Use
  Company Number: CA-ABBVIE-17P-028-2043256-00

PATIENT
  Age: 62 Year
  Sex: Male

DRUGS (1)
  1. LUPRON DEPOT [Suspect]
     Active Substance: LEUPROLIDE ACETATE
     Indication: PROSTATE CANCER
     Route: 030
     Dates: start: 20150706

REACTIONS (8)
  - Thyroid mass [Unknown]
  - Hot flush [Unknown]
  - Death [Fatal]
  - Musculoskeletal stiffness [Unknown]
  - Pulmonary mass [Unknown]
  - Neoplasm prostate [Unknown]
  - Hypertension [Unknown]
  - Nasopharyngitis [Unknown]

NARRATIVE: CASE EVENT DATE: 20170330
